FAERS Safety Report 5653780-1 (Version None)
Quarter: 2008Q1

REPORT INFORMATION
  Report Type: 
  Country: None (occurrence: None)
  Receive Date: 20080205
  Receipt Date: 20071030
  Transmission Date: 20080703
  Serious: Yes (Other)
  Sender: FDA-Public Use
  Company Number: 522887

PATIENT
  Age: 76 Year
  Sex: Female

DRUGS (3)
  1. BONIVA [Suspect]
     Indication: DRUG USE FOR UNKNOWN INDICATION
     Dosage: 1 PER 3 MONTH
     Dates: start: 20070415
  2. HYDROCHLOROTHIAZIDE [Concomitant]
  3. SINGULAIR [Concomitant]

REACTIONS (2)
  - ERUCTATION [None]
  - GASTROOESOPHAGEAL REFLUX DISEASE [None]
